FAERS Safety Report 11743739 (Version 9)
Quarter: 2017Q3

REPORT INFORMATION
  Report Type: Spontaneous
  Country: US (occurrence: US)
  Receive Date: 20151116
  Receipt Date: 20170807
  Transmission Date: 20171127
  Serious: Yes (Other)
  Sender: FDA-Public Use
  Company Number: PHEH2015US023670

PATIENT
  Sex: Female
  Weight: 84.81 kg

DRUGS (4)
  1. ZOFRAN [Suspect]
     Active Substance: ONDANSETRON HYDROCHLORIDE
     Indication: VOMITING IN PREGNANCY
     Dosage: 4 MG, Q6H
     Route: 042
  2. ONDANSETRON//ONDANSETRON HYDROCHLORIDE [Suspect]
     Active Substance: ONDANSETRON\ONDANSETRON HYDROCHLORIDE
     Indication: VOMITING IN PREGNANCY
     Dosage: 8 MG, PRN
     Route: 065
     Dates: start: 20140723, end: 20140920
  3. ZOFRAN ODT [Suspect]
     Active Substance: ONDANSETRON HYDROCHLORIDE
     Indication: VOMITING IN PREGNANCY
     Dosage: 8 MG, Q4H
     Route: 048
  4. ONDANSETRON HYDROCHLORIDE. [Suspect]
     Active Substance: ONDANSETRON HYDROCHLORIDE
     Indication: VOMITING IN PREGNANCY
     Dosage: 4 MG, QD
     Route: 042
     Dates: start: 20140808, end: 20140808

REACTIONS (39)
  - Amniotic cavity infection [Unknown]
  - Vaginal discharge [Unknown]
  - Dyspepsia [Unknown]
  - Hyperlipidaemia [Unknown]
  - Cystitis [Unknown]
  - Leiomyoma [Unknown]
  - Injury [Unknown]
  - Oropharyngeal pain [Unknown]
  - Dizziness [Unknown]
  - Vaginal haemorrhage [Unknown]
  - Micturition urgency [Unknown]
  - Urinary tract infection [Unknown]
  - Bronchitis [Unknown]
  - Bacterial vulvovaginitis [Unknown]
  - Rhinorrhoea [Unknown]
  - Asthma [Unknown]
  - Conjunctival abrasion [Unknown]
  - Pruritus [Unknown]
  - Product use in unapproved indication [Unknown]
  - Maternal exposure during pregnancy [Unknown]
  - Pain [Unknown]
  - Oedema peripheral [Unknown]
  - Ear pain [Unknown]
  - Corneal abrasion [Unknown]
  - Headache [Unknown]
  - Gestational diabetes [Unknown]
  - Depression [Unknown]
  - Dyspareunia [Unknown]
  - Back pain [Unknown]
  - Panic attack [Unknown]
  - Anxiety [Unknown]
  - Emotional distress [Unknown]
  - Swelling [Unknown]
  - Abdominal pain [Unknown]
  - Gastrooesophageal reflux disease [Unknown]
  - Dysmenorrhoea [Unknown]
  - Stress urinary incontinence [Unknown]
  - Fall [Unknown]
  - Diarrhoea [Unknown]
